FAERS Safety Report 8710308 (Version 2)
Quarter: 2013Q4

REPORT INFORMATION
  Report Type: Spontaneous
  Country: US (occurrence: US)
  Receive Date: 20120807
  Receipt Date: 20131101
  Transmission Date: 20140711
  Serious: No
  Sender: FDA-Public Use
  Company Number: US-009507513-1208USA000268

PATIENT
  Age: 5 Year
  Sex: Female
  Weight: 23.58 kg

DRUGS (2)
  1. SINGULAIR [Suspect]
     Indication: HYPERSENSITIVITY
     Dosage: 5 MG, 3 TO 4 TABLETS A DAY
     Route: 048
     Dates: start: 20120705, end: 20120726
  2. SINGULAIR [Suspect]
     Dosage: 5 MG, QD
     Route: 048
     Dates: start: 2010

REACTIONS (2)
  - Overdose [Unknown]
  - No adverse event [Unknown]
